FAERS Safety Report 13597438 (Version 2)
Quarter: 2017Q3

REPORT INFORMATION
  Report Type: Report from Study
  Country: US (occurrence: BR)
  Receive Date: 20170531
  Receipt Date: 20170721
  Transmission Date: 20171127
  Serious: Yes (Death, Other)
  Sender: FDA-Public Use
  Company Number: US-SUNOVION-2017SUN002267

PATIENT
  Sex: Female

DRUGS (1)
  1. INDACATEROL AND GLYCOPYRROLATE [Suspect]
     Active Substance: GLYCOPYRROLATE\INDACATEROL MALEATE
     Indication: RESPIRATION ABNORMAL
     Dosage: 1 DF 50 UG GLYCOPYRRONIUM, 110 UG INDACATEROL), QD
     Route: 055

REACTIONS (3)
  - Cardiac disorder [Fatal]
  - Pulmonary oedema [Fatal]
  - Product use in unapproved indication [Unknown]
